FAERS Safety Report 4634646-2 (Version None)
Quarter: 2005Q2

REPORT INFORMATION
  Report Type: 
  Country: None (occurrence: None)
  Receive Date: 20050413
  Receipt Date: 20050329
  Transmission Date: 20051028
  Serious: Yes (Hospitalization)
  Sender: FDA-Public Use
  Company Number: 2005BI001633

PATIENT
  Age: 51 Year
  Sex: Female

DRUGS (11)
  1. AVONEX [Suspect]
     Indication: MULTIPLE SCLEROSIS
     Dosage: 30 UG;QW; IM
     Route: 030
     Dates: start: 20040401
  2. CYSTOSPAZ [Concomitant]
  3. BACLOFEN [Concomitant]
  4. LEVSIN [Concomitant]
  5. XANAX [Concomitant]
  6. TOPAMAX [Concomitant]
  7. SEROQUEL [Concomitant]
  8. NEURONTIN [Concomitant]
  9. DETROL LA [Concomitant]
  10. MIRALAX [Concomitant]
  11. SOLU-MEDROL [Concomitant]

REACTIONS (2)
  - DECUBITUS ULCER [None]
  - URINARY INCONTINENCE [None]
